FAERS Safety Report 21795714 (Version 1)
Quarter: 2022Q4

REPORT INFORMATION
  Report Type: Report from Study
  Country: US (occurrence: US)
  Receive Date: 20221229
  Receipt Date: 20221229
  Transmission Date: 20230113
  Serious: No
  Sender: FDA-Public Use
  Company Number: US-ABBVIE-4253010

PATIENT
  Sex: Female

DRUGS (1)
  1. VENCLEXTA [Suspect]
     Active Substance: VENETOCLAX
     Indication: Chronic lymphocytic leukaemia
     Dosage: EVENTS ONSET SHOULD BE 2022
     Route: 048
     Dates: start: 20220819

REACTIONS (3)
  - Depressed mood [Unknown]
  - Dizziness [Unknown]
  - Nausea [Unknown]
